FAERS Safety Report 8779470 (Version 1)
Quarter: 2012Q4

REPORT INFORMATION
  Report Type: 
  Country: IN (occurrence: IN)
  Receive Date: 20120912
  Receipt Date: 20120912
  Transmission Date: 20130627
  Serious: Yes (Death)
  Sender: FDA-Public Use
  Company Number: IN-MYLANLABS-2012S1018318

PATIENT
  Age: 8 Year
  Sex: Female

DRUGS (1)
  1. NAPROXEN [Suspect]
     Indication: JUVENILE ARTHRITIS
     Route: 065

REACTIONS (1)
  - Histiocytosis haematophagic [Fatal]
